FAERS Safety Report 19463916 (Version 1)
Quarter: 2021Q2

REPORT INFORMATION
  Report Type: Other
  Country: US (occurrence: US)
  Receive Date: 20210627
  Receipt Date: 20210627
  Transmission Date: 20210717
  Serious: Yes (Hospitalization, Other)
  Sender: FDA-Public Use
  Company Number: US-DEXPHARM-20210896

PATIENT
  Age: 50 Year
  Sex: Male

DRUGS (9)
  1. CLONIDINE. [Interacting]
     Active Substance: CLONIDINE
  2. DIPHENHYDRAMINE. [Interacting]
     Active Substance: DIPHENHYDRAMINE
  3. TRAMADOL. [Interacting]
     Active Substance: TRAMADOL
  4. PSEUDOEPHEDRINE. [Interacting]
     Active Substance: PSEUDOEPHEDRINE HYDROCHLORIDE
  5. CITALOPRAM [Interacting]
     Active Substance: CITALOPRAM HYDROBROMIDE
  6. AMFETAMINE [Suspect]
     Active Substance: AMPHETAMINE
  7. VENLAFAXINE [Interacting]
     Active Substance: VENLAFAXINE HYDROCHLORIDE
  8. IBUPROFEN. [Interacting]
     Active Substance: IBUPROFEN
  9. QUETIAPINE. [Interacting]
     Active Substance: QUETIAPINE

REACTIONS (6)
  - Miosis [Recovered/Resolved]
  - Hyperkinesia [Recovered/Resolved]
  - Drug interaction [Recovered/Resolved]
  - Overdose [Recovered/Resolved]
  - Intentional product misuse [Recovered/Resolved]
  - Unresponsive to stimuli [Recovered/Resolved]
